FAERS Safety Report 4818991-3 (Version None)
Quarter: 2005Q4

REPORT INFORMATION
  Report Type: 
  Country: None (occurrence: None)
  Receive Date: 20051102
  Receipt Date: 20051102
  Transmission Date: 20060501
  Serious: Yes (Other)
  Sender: FDA-Public Use
  Company Number: None

PATIENT
  Age: 64 Year
  Sex: Male
  Weight: 103.4201 kg

DRUGS (5)
  1. TAXOTERE [Suspect]
     Indication: URETERIC CANCER METASTATIC
     Dosage: 171.75MG/Q3 WEEK/IV
     Route: 042
     Dates: start: 20050411
  2. GLEEVEC [Suspect]
     Indication: URETERIC CANCER METASTATIC
     Dosage: 400MG QD FOR 6 DAYS/PO
     Route: 048
     Dates: start: 20050407, end: 20050412
  3. CA. GLUCONATE [Concomitant]
  4. CIPROFLOXIN [Concomitant]
  5. TYLENOL (CAPLET) [Concomitant]

REACTIONS (1)
  - HAEMOGLOBIN DECREASED [None]
